FAERS Safety Report 6966773-9 (Version None)
Quarter: 2010Q3

REPORT INFORMATION
  Report Type: 
  Country: None (occurrence: None)
  Receive Date: 20100906
  Receipt Date: 20100901
  Transmission Date: 20110219
  Serious: Yes (Hospitalization)
  Sender: FDA-Public Use
  Company Number: GB-BRISTOL-MYERS SQUIBB COMPANY-15267586

PATIENT
  Age: 77 Year
  Sex: Male

DRUGS (1)
  1. HYDREA [Suspect]
     Indication: POLYCYTHAEMIA VERA

REACTIONS (7)
  - BLOOD URINE PRESENT [None]
  - CHILLS [None]
  - DECREASED APPETITE [None]
  - DIARRHOEA [None]
  - DISORIENTATION [None]
  - HEADACHE [None]
  - PYREXIA [None]
